FAERS Safety Report 26126862 (Version 1)
Quarter: 2025Q4

REPORT INFORMATION
  Report Type: Spontaneous
  Country: US (occurrence: US)
  Receive Date: 20251205
  Receipt Date: 20251205
  Transmission Date: 20260118
  Serious: No
  Sender: NOVO NORDISK
  Company Number: US-NOVOPROD-1376505

PATIENT
  Sex: Female

DRUGS (1)
  1. INSULIN HUMAN [Suspect]
     Active Substance: INSULIN HUMAN
     Indication: Diabetes mellitus
     Dosage: FOR A MONTH
     Route: 058
     Dates: start: 202501

REACTIONS (2)
  - Fungal infection [Not Recovered/Not Resolved]
  - Blood glucose increased [Not Recovered/Not Resolved]
